FAERS Safety Report 17843033 (Version 5)
Quarter: 2021Q4

REPORT INFORMATION
  Report Type: Report from Study
  Country: CA (occurrence: CA)
  Receive Date: 20200530
  Receipt Date: 20211125
  Transmission Date: 20220303
  Serious: Yes (Other)
  Sender: FDA-Public Use
  Company Number: PHHY2019CA010444

PATIENT
  Sex: Female

DRUGS (8)
  1. ERELZI [Suspect]
     Active Substance: ETANERCEPT-SZZS
     Indication: Juvenile idiopathic arthritis
     Dosage: 50 MG, QW
     Route: 058
     Dates: start: 20181123
  2. ERELZI [Suspect]
     Active Substance: ETANERCEPT-SZZS
     Indication: Ankylosing spondylitis
     Dosage: 50 MG, QW
     Route: 058
     Dates: start: 20190812, end: 20190812
  3. COSENTYX [Suspect]
     Active Substance: SECUKINUMAB
     Indication: Juvenile idiopathic arthritis
     Dosage: 150 MG, QW
     Route: 058
     Dates: start: 20200703
  4. COSENTYX [Suspect]
     Active Substance: SECUKINUMAB
     Indication: Ankylosing spondylitis
  5. ENBREL [Suspect]
     Active Substance: ETANERCEPT
     Indication: Spondyloarthropathy
     Dosage: UNK
     Route: 065
  6. HUMIRA [Suspect]
     Active Substance: ADALIMUMAB
     Indication: Juvenile idiopathic arthritis
     Dosage: UNK
     Route: 058
     Dates: start: 2019, end: 2020
  7. HUMIRA [Suspect]
     Active Substance: ADALIMUMAB
     Indication: Ankylosing spondylitis
  8. SULFASALAZINE [Concomitant]
     Active Substance: SULFASALAZINE
     Indication: Product used for unknown indication
     Dosage: UNK
     Route: 048
     Dates: start: 2016

REACTIONS (9)
  - Ankylosing spondylitis [Unknown]
  - Pain [Unknown]
  - Back pain [Not Recovered/Not Resolved]
  - Arthralgia [Not Recovered/Not Resolved]
  - Headache [Not Recovered/Not Resolved]
  - Injection site pain [Unknown]
  - Drug ineffective [Unknown]
  - Product dose omission issue [Unknown]
  - Product use in unapproved indication [Unknown]
